FAERS Safety Report 21403375 (Version 2)
Quarter: 2023Q2

REPORT INFORMATION
  Report Type: Spontaneous
  Country: GB (occurrence: GB)
  Receive Date: 20221003
  Receipt Date: 20230622
  Transmission Date: 20230722
  Serious: Yes (Other)
  Sender: FDA-Public Use
  Company Number: None

PATIENT

DRUGS (11)
  1. IBUPROFEN [Suspect]
     Active Substance: IBUPROFEN
     Indication: Ill-defined disorder
     Dosage: UNK
     Dates: start: 20221001
  2. FLUTICASONE FUROATE\SALMETEROL XINAFOATE [Concomitant]
     Active Substance: FLUTICASONE FUROATE\SALMETEROL XINAFOATE
     Indication: Ill-defined disorder
     Dosage: 2 PUFF(S), BID (TWO PUFFS TO BE INHALED TWICE A DAY THE SAME AS.)
     Dates: start: 20210827
  3. ATORVASTATIN [Concomitant]
     Active Substance: ATORVASTATIN
     Indication: Ill-defined disorder
     Dosage: 1 DF, QD (ONE TO BE TAKEN EACH DAY)
     Dates: start: 20210601
  4. AUDAVATE [Concomitant]
     Indication: Ill-defined disorder
     Dosage: APPLY THINLY TWICE A DAY WHEN NEEDED
     Dates: start: 20170421
  5. TIOTROPIUM BROMIDE [Concomitant]
     Active Substance: TIOTROPIUM BROMIDE
     Indication: Ill-defined disorder
     Dosage: 1 DF, QD (INHALE THE CONTENTS OF ONE CAPSULE ONCE DAILY)
     Dates: start: 20180919
  6. COCODAMOL [Concomitant]
     Active Substance: ACETAMINOPHEN\CODEINE PHOSPHATE
     Indication: Ill-defined disorder
     Dosage: UNK UNK, QID (TAKE 1 OR 2 4 TIMES/DAY)
     Dates: start: 20221001
  7. LEVOTHYROXINE [Concomitant]
     Active Substance: LEVOTHYROXINE
     Indication: Ill-defined disorder
     Dosage: 1 DF, QD (ONE TO BE TAKEN DAILY)
     Dates: start: 20060621
  8. MONTELUKAST [Concomitant]
     Active Substance: MONTELUKAST SODIUM
     Indication: Ill-defined disorder
     Dosage: 1 DF, QD (ONE TO BE TAKEN DAILY)
     Dates: start: 20090807
  9. ALBUTEROL [Concomitant]
     Active Substance: ALBUTEROL
     Indication: Ill-defined disorder
     Dosage: UNK UNK, QID (ONE OR TWO PUFFS TO BE INHALED UP TO FOUR TIMES)
     Dates: start: 20220712
  10. BUDESONIDE\FORMOTEROL\GLYCOPYRRONIUM [Concomitant]
     Active Substance: BUDESONIDE\FORMOTEROL\GLYCOPYRRONIUM
     Indication: Ill-defined disorder
     Dosage: UNK UNK, BID (INHALE 2 DOSES TWICE DAILY)
     Dates: start: 20220909
  11. VENTOLIN [Concomitant]
     Active Substance: ALBUTEROL SULFATE
     Indication: Ill-defined disorder
     Dosage: UNK UNK, QID (ONE OR TWO PUFFS TO BE INHALED UP TO FOUR TIMES)
     Dates: start: 20190902, end: 20220712

REACTIONS (1)
  - Urticaria [Recovered/Resolved]

NARRATIVE: CASE EVENT DATE: 20221001
